FAERS Safety Report 4363351-5 (Version None)
Quarter: 2004Q2

REPORT INFORMATION
  Report Type: 
  Country: None (occurrence: None)
  Receive Date: 20040524
  Receipt Date: 20040428
  Transmission Date: 20050107
  Serious: Yes (Life-Threatening, Hospitalization, Disabling, Other)
  Sender: FDA-Public Use
  Company Number: US-MERCK-0404USA02423

PATIENT
  Age: 76 Year
  Sex: Female

DRUGS (7)
  1. ASPIRIN [Concomitant]
     Route: 065
  2. LIPITOR [Concomitant]
     Route: 048
     Dates: start: 20030801
  3. IMDUR [Concomitant]
     Route: 048
  4. COZAAR [Suspect]
     Indication: CORONARY ARTERY SURGERY
     Route: 048
     Dates: start: 20031001, end: 20040416
  5. METOPROLOL TARTRATE [Concomitant]
     Route: 048
  6. PRANDIN [Concomitant]
     Route: 048
  7. COUMADIN [Concomitant]
     Route: 048

REACTIONS (5)
  - BLOOD BILIRUBIN INCREASED [None]
  - ENCEPHALOPATHY [None]
  - HEPATIC ENZYME INCREASED [None]
  - INTERNATIONAL NORMALISED RATIO INCREASED [None]
  - JAUNDICE [None]
